FAERS Safety Report 9310275 (Version 1)
Quarter: 2013Q2

REPORT INFORMATION
  Report Type: Spontaneous
  Country: US (occurrence: US)
  Receive Date: 20130527
  Receipt Date: 20130527
  Transmission Date: 20140414
  Serious: Yes (Hospitalization, Other)
  Sender: FDA-Public Use
  Company Number: PHEH2013US007069

PATIENT
  Sex: Female

DRUGS (16)
  1. RECLAST [Suspect]
     Dosage: UNK UKN, UNK
     Route: 042
     Dates: start: 20130103
  2. DIOVAN [Suspect]
     Dosage: UNK UKN, UNK
  3. PREDNISONE [Concomitant]
     Dosage: UNK UKN, UNK
  4. ARAVA [Concomitant]
     Dosage: UNK UKN, UNK
  5. PLAQUENIL [Concomitant]
     Dosage: UNK UKN, UNK
  6. SYNTHROID [Concomitant]
     Dosage: UNK UKN, UNK
  7. NEXUM [Concomitant]
     Dosage: UNK UKN, UNK
  8. PROZAC [Concomitant]
     Dosage: UNK UKN, UNK
  9. CLONIDINE [Concomitant]
     Dosage: UNK UKN, UNK
  10. MIRAPEX [Concomitant]
     Dosage: UNK UKN, UNK
  11. BYSTOLIC [Concomitant]
     Dosage: UNK UKN, UNK
  12. TRAMADOLE [Concomitant]
     Dosage: UNK UKN, UNK
  13. VITAMIN D [Concomitant]
     Dosage: UNK UKN, UNK
  14. CALCIUM [Concomitant]
     Dosage: UNK UKN, UNK
  15. MULTI-VIT [Concomitant]
     Dosage: UNK UKN, UNK
  16. MAGNESIUM [Concomitant]
     Dosage: UNK UKN, UNK

REACTIONS (7)
  - Hyponatraemia [Unknown]
  - Hypocalcaemia [Unknown]
  - Hypertension [Unknown]
  - Nausea [Unknown]
  - Vomiting [Unknown]
  - Headache [Unknown]
  - Rheumatoid arthritis [Unknown]
